FAERS Safety Report 5582555-7 (Version None)
Quarter: 2007Q4

REPORT INFORMATION
  Report Type: 
  Country: None (occurrence: None)
  Receive Date: 20071130
  Receipt Date: 20070328
  Transmission Date: 20080405
  Serious: Yes (Other)
  Sender: FDA-Public Use
  Company Number: WAES 0703USA05263

PATIENT
  Age: 69 Year
  Sex: Female
  Weight: 59.8748 kg

DRUGS (1)
  1. FOSAMAX [Suspect]
     Indication: OSTEOPOROSIS
     Dosage: 70 MG/WKY/PO
     Route: 048
     Dates: start: 20030808, end: 20050801

REACTIONS (5)
  - BONE CYST [None]
  - DEPRESSION [None]
  - MUSCLE SPASMS [None]
  - OSTEONECROSIS [None]
  - PARANASAL SINUS HYPERSECRETION [None]
